FAERS Safety Report 16498574 (Version 1)
Quarter: 2019Q2

REPORT INFORMATION
  Report Type: Spontaneous
  Country: US (occurrence: US)
  Receive Date: 20190629
  Receipt Date: 20190629
  Transmission Date: 20190711
  Serious: Yes (Other)
  Sender: FDA-Public Use
  Company Number: US-AUROBINDO-AUR-APL-2019-034167

PATIENT

DRUGS (1)
  1. MINOCYCLINE HYDROCHLORIDE EXTENDED-RELEASE TABLETS 90MG [Suspect]
     Active Substance: MINOCYCLINE HYDROCHLORIDE
     Indication: PRODUCT USED FOR UNKNOWN INDICATION
     Dosage: UNK
     Route: 065
     Dates: start: 201806

REACTIONS (2)
  - Lupus-like syndrome [Unknown]
  - Product substitution issue [Unknown]
